FAERS Safety Report 14234816 (Version 1)
Quarter: 2017Q4

REPORT INFORMATION
  Report Type: Report from Study
  Country: FR (occurrence: FR)
  Receive Date: 20171129
  Receipt Date: 20171129
  Transmission Date: 20180321
  Serious: Yes (Other)
  Sender: FDA-Public Use
  Company Number: FR-CIPLA LTD.-2017FR21730

PATIENT

DRUGS (1)
  1. GEMCITABINE [Suspect]
     Active Substance: GEMCITABINE\GEMCITABINE HYDROCHLORIDE
     Indication: PANCREATIC CARCINOMA METASTATIC
     Dosage: 1000 MG/M2, DELIVERED BY 30-MINUTE INTRAVENOUS INFUSION WEEKLY FOR 7 WEEKS, FOLLOWED BY A 1-WEEK RES
     Route: 042

REACTIONS (1)
  - Disease progression [Unknown]
